FAERS Safety Report 22141078 (Version 2)
Quarter: 2023Q2

REPORT INFORMATION
  Report Type: Spontaneous
  Country: US (occurrence: US)
  Receive Date: 20230327
  Receipt Date: 20230628
  Transmission Date: 20230722
  Serious: No
  Sender: FDA-Public Use
  Company Number: US-CORIUM, LLC-2023COR000049

PATIENT
  Age: 9 Year
  Sex: Female

DRUGS (2)
  1. AZSTARYS [Suspect]
     Active Substance: DEXMETHYLPHENIDATE HYDROCHLORIDE\SERDEXMETHYLPHENIDATE CHLORIDE
     Indication: Product used for unknown indication
     Dosage: 26.1MG/5.2MG
     Route: 048
     Dates: end: 2023
  2. AZSTARYS [Suspect]
     Active Substance: DEXMETHYLPHENIDATE HYDROCHLORIDE\SERDEXMETHYLPHENIDATE CHLORIDE
     Dosage: 26.1MG/5.2MG
     Route: 048
     Dates: start: 2023

REACTIONS (5)
  - Blunted affect [Unknown]
  - Change in sustained attention [Unknown]
  - Anger [Unknown]
  - Emotional disorder [Unknown]
  - Agitation [Unknown]
